FAERS Safety Report 6450170-9 (Version None)
Quarter: 2009Q4

REPORT INFORMATION
  Report Type: 
  Country: None (occurrence: None)
  Receive Date: 20091123
  Receipt Date: 20091113
  Transmission Date: 20100525
  Serious: Yes (Hospitalization)
  Sender: FDA-Public Use
  Company Number: MX-ROCHE-662496

PATIENT
  Age: 53 Year
  Sex: Female

DRUGS (2)
  1. PEG-INTERFERON ALFA 2A (RO 25-8310) [Suspect]
     Route: 065
     Dates: start: 20060725, end: 20071008
  2. INSULINA NPH [Concomitant]
     Dosage: DOSE: 26/6 AND 30/8

REACTIONS (1)
  - VERTIGO [None]
